FAERS Safety Report 12178922 (Version 1)
Quarter: 2016Q1

REPORT INFORMATION
  Report Type: Spontaneous
  Country: US (occurrence: US)
  Receive Date: 20160314
  Receipt Date: 20160314
  Transmission Date: 20160526
  Serious: No
  Sender: FDA-Public Use
  Company Number: US-SA-2016SA025656

PATIENT
  Age: 68 Year
  Sex: Female

DRUGS (5)
  1. GLIMEPIRIDE. [Concomitant]
     Active Substance: GLIMEPIRIDE
  2. TOUJEO [Suspect]
     Active Substance: INSULIN GLARGINE
     Indication: TYPE 2 DIABETES MELLITUS
     Dosage: DOSE:120 UNIT(S)
     Route: 065
     Dates: start: 20160101
  3. SOLOSTAR [Concomitant]
     Active Substance: DEVICE
     Dates: start: 20160101
  4. BYDUREON [Concomitant]
     Active Substance: EXENATIDE
     Dosage: FREQ: ONCE A WEEK
  5. HUMALOG [Concomitant]
     Active Substance: INSULIN LISPRO
     Dosage: USED RARELY

REACTIONS (4)
  - Nervousness [Unknown]
  - Abdominal distension [Unknown]
  - Weight increased [Unknown]
  - Breast tenderness [Unknown]
